FAERS Safety Report 5444320-0 (Version None)
Quarter: 2007Q3

REPORT INFORMATION
  Report Type: 
  Country: None (occurrence: None)
  Receive Date: 20070906
  Receipt Date: 20070828
  Transmission Date: 20080115
  Serious: Yes (Other)
  Sender: FDA-Public Use
  Company Number: FR-BRISTOL-MYERS SQUIBB COMPANY-13898903

PATIENT
  Age: 74 Year
  Sex: Female

DRUGS (5)
  1. ENDOXAN [Suspect]
     Indication: WEGENER'S GRANULOMATOSIS
     Route: 042
     Dates: start: 20070721
  2. CALCIPARINE [Suspect]
     Route: 058
     Dates: start: 20070722, end: 20070727
  3. DETENSIEL [Concomitant]
     Indication: HYPERTENSION
     Dosage: 1 DOSAGE FORM = 1 TABLET
     Route: 048
  4. CLONAZEPAM [Concomitant]
     Indication: PAIN
     Dosage: 1 DOSAGE FORM = 5 DROPS
     Route: 048
  5. INIPOMP [Concomitant]
     Dosage: 1 DOSAGE FORM = 1 TABLET
     Route: 048

REACTIONS (2)
  - HEPARIN-INDUCED THROMBOCYTOPENIA [None]
  - LYMPHOPENIA [None]
